FAERS Safety Report 14623146 (Version 1)
Quarter: 2018Q1

REPORT INFORMATION
  Report Type: Spontaneous
  Country: AU (occurrence: AU)
  Receive Date: 20180311
  Receipt Date: 20180311
  Transmission Date: 20180509
  Serious: Yes (Other)
  Sender: FDA-Public Use
  Company Number: AU-009507513-1706AUS001733

PATIENT
  Sex: Male

DRUGS (4)
  1. KEYTRUDA [Suspect]
     Active Substance: PEMBROLIZUMAB
     Dosage: DOSE UNSPEC
  2. KEYTRUDA [Suspect]
     Active Substance: PEMBROLIZUMAB
     Dosage: DOSE UNSPEC
  3. KEYTRUDA [Suspect]
     Active Substance: PEMBROLIZUMAB
     Indication: NON-SMALL CELL LUNG CANCER
     Dosage: DOSE UNSPEC
  4. FUCOIDAN [Concomitant]
     Indication: ROUTINE HEALTH MAINTENANCE

REACTIONS (2)
  - Disease progression [Unknown]
  - Malignant neoplasm progression [Unknown]
